FAERS Safety Report 10569231 (Version 2)
Quarter: 2014Q4

REPORT INFORMATION
  Report Type: Spontaneous
  Country: US (occurrence: US)
  Receive Date: 20141106
  Receipt Date: 20141126
  Transmission Date: 20150529
  Serious: Yes (Other)
  Sender: FDA-Public Use
  Company Number: US-SUCAMPO AG-SPI201400794

PATIENT
  Sex: Female

DRUGS (3)
  1. AMITIZA [Suspect]
     Active Substance: LUBIPROSTONE
     Dosage: UNK
  2. XARELTO [Suspect]
     Active Substance: RIVAROXABAN
  3. LINZESS [Suspect]
     Active Substance: LINACLOTIDE

REACTIONS (2)
  - Transfusion [Unknown]
  - Gastrointestinal haemorrhage [Recovered/Resolved]
